FAERS Safety Report 18501245 (Version 1)
Quarter: 2020Q4

REPORT INFORMATION
  Report Type: Spontaneous
  Country: US (occurrence: US)
  Receive Date: 20201113
  Receipt Date: 20201113
  Transmission Date: 20210114
  Serious: Yes (Life-Threatening, Other)
  Sender: FDA-Public Use
  Company Number: US-PFIZER INC-2020444413

PATIENT
  Age: 10 Year
  Sex: Male

DRUGS (9)
  1. HALOPERIDOL. [Suspect]
     Active Substance: HALOPERIDOL
     Indication: AUTISM SPECTRUM DISORDER
     Dosage: 5 MG
     Route: 030
  2. HALOPERIDOL. [Suspect]
     Active Substance: HALOPERIDOL
     Indication: BEHAVIOUR DISORDER
     Dosage: 20 MG (ADDITIONAL 4 DOSES)
  3. CLONAZEPAM. [Concomitant]
     Active Substance: CLONAZEPAM
     Indication: BEHAVIOUR DISORDER
  4. DIPHENHYDRAMINE. [Concomitant]
     Active Substance: DIPHENHYDRAMINE
     Indication: DYSTONIA
     Dosage: UNK
  5. LORAZEPAM. [Suspect]
     Active Substance: LORAZEPAM
     Indication: BEHAVIOUR DISORDER
     Dosage: 8 MG (ADDITIONAL 4 DOSES)
     Route: 030
  6. LORAZEPAM. [Suspect]
     Active Substance: LORAZEPAM
     Indication: AUTISM SPECTRUM DISORDER
     Dosage: 2 MG (OVER 1 TO 2 DAYS)
     Route: 030
  7. RISPERIDONE. [Concomitant]
     Active Substance: RISPERIDONE
     Indication: AUTISM SPECTRUM DISORDER
     Dosage: UNK
  8. RISPERIDONE. [Concomitant]
     Active Substance: RISPERIDONE
     Indication: BEHAVIOUR DISORDER
  9. CLONAZEPAM. [Concomitant]
     Active Substance: CLONAZEPAM
     Indication: AUTISM SPECTRUM DISORDER
     Dosage: UNK

REACTIONS (6)
  - Dystonia [Unknown]
  - Pyrexia [Unknown]
  - Tachycardia [Unknown]
  - Blood creatine phosphokinase increased [Recovering/Resolving]
  - Neuroleptic malignant syndrome [Unknown]
  - White blood cell count increased [Unknown]
